FAERS Safety Report 21231533 (Version 10)
Quarter: 2023Q1

REPORT INFORMATION
  Report Type: Spontaneous
  Country: JP (occurrence: JP)
  Receive Date: 20220819
  Receipt Date: 20230112
  Transmission Date: 20230417
  Serious: Yes (Life-Threatening, Hospitalization, Other)
  Sender: FDA-Public Use
  Company Number: JP-MSD-M2022-33713

PATIENT
  Sex: Male
  Weight: 71 kg

DRUGS (10)
  1. KEYTRUDA [Suspect]
     Active Substance: PEMBROLIZUMAB
     Indication: Non-small cell lung cancer stage IV
     Dosage: 200 MILLIGRAM, Q3W
     Route: 041
     Dates: start: 20220516, end: 20220627
  2. KEYTRUDA [Suspect]
     Active Substance: PEMBROLIZUMAB
     Dosage: UNK
     Route: 065
     Dates: start: 20220725, end: 20220725
  3. CARBOPLATIN [Suspect]
     Active Substance: CARBOPLATIN
     Indication: Non-small cell lung cancer stage IV
     Dosage: 410 MILLIGRAM, Q3W
     Route: 041
     Dates: start: 20220725, end: 20220725
  4. PEMETREXED DISODIUM [Suspect]
     Active Substance: PEMETREXED DISODIUM
     Indication: Non-small cell lung cancer stage IV
     Dosage: 940 MILLIGRAM, Q3W
     Route: 041
     Dates: start: 20220725, end: 20220725
  5. LEVETIRACETAM [Concomitant]
     Active Substance: LEVETIRACETAM
     Indication: Seizure
     Dosage: 500 MILLIGRAM, BID
     Route: 048
     Dates: start: 20220302, end: 20220813
  6. ADALAT [Concomitant]
     Active Substance: NIFEDIPINE
     Indication: Blood pressure management
     Dosage: 20 MILLIGRAM
     Route: 048
     Dates: start: 20220410, end: 20220804
  7. OLMESARTAN MEDOXOMIL [Concomitant]
     Active Substance: OLMESARTAN MEDOXOMIL
     Indication: Blood pressure management
     Dosage: 40 MILLIGRAM, QD
     Route: 048
     Dates: start: 20220413, end: 20220804
  8. LOXOPROFEN SODIUM [Concomitant]
     Active Substance: LOXOPROFEN SODIUM
     Indication: Tumour associated fever
     Dosage: 60 MILLIGRAM, TID
     Route: 048
     Dates: start: 20220410, end: 20220804
  9. GASTER [Concomitant]
     Active Substance: FAMOTIDINE
     Indication: Prophylaxis against gastrointestinal ulcer
     Dosage: 20 MILLIGRAM, BID
     Route: 048
     Dates: start: 20220801, end: 20220804
  10. BETAMETHASONE [Concomitant]
     Active Substance: BETAMETHASONE
     Indication: Prophylaxis
     Dosage: 1 MILLIGRAM, BID
     Route: 048
     Dates: start: 20220801, end: 20220804

REACTIONS (6)
  - Stevens-Johnson syndrome [Recovered/Resolved]
  - Immune-mediated enterocolitis [Recovering/Resolving]
  - Febrile neutropenia [Recovering/Resolving]
  - Malignant neoplasm progression [Unknown]
  - Feeding disorder [Unknown]
  - Oropharyngeal pain [Recovering/Resolving]

NARRATIVE: CASE EVENT DATE: 20220101
